FAERS Safety Report 4765039-5 (Version None)
Quarter: 2005Q3

REPORT INFORMATION
  Report Type: 
  Country: None (occurrence: None)
  Receive Date: 20050907
  Receipt Date: 20050830
  Transmission Date: 20060218
  Serious: Yes (Other)
  Sender: FDA-Public Use
  Company Number: 217225

PATIENT
  Age: 25 Year
  Sex: Female
  Weight: 105.2 kg

DRUGS (8)
  1. XOLAIR [Suspect]
     Indication: ASTHMA
     Dosage: 300 MG, Q2W, SUBCUTANEOUS
     Route: 058
     Dates: start: 20050810
  2. ADVAIR (SALMETEROL XINAFOATE, FLUTICASONE PROPIONATE) [Concomitant]
  3. SINGULARI (MONTELUKAST SODIUM) [Concomitant]
  4. NEXIUM [Concomitant]
  5. SPIRIVA [Concomitant]
  6. ALLEGRA [Concomitant]
  7. NASACORT AZ (TRIAMCINOLONE ACETONIDE) [Concomitant]
  8. DUONEB (ALBUTEROL, ALBUTEROL SULFATE, IPRATROPIUM BROMIDE) [Concomitant]

REACTIONS (2)
  - ACTIVITIES OF DAILY LIVING IMPAIRED [None]
  - HEADACHE [None]
